FAERS Safety Report 6292191-5 (Version None)
Quarter: 2009Q3

REPORT INFORMATION
  Report Type: 
  Country: None (occurrence: None)
  Receive Date: 20090731
  Receipt Date: 20090723
  Transmission Date: 20100115
  Serious: Yes (Other)
  Sender: FDA-Public Use
  Company Number: US-JNJFOC-20090705997

PATIENT
  Age: 40 Year
  Sex: Female

DRUGS (5)
  1. MONISTAT 7 [Suspect]
     Route: 067
  2. MONISTAT 7 [Suspect]
     Indication: FUNGAL INFECTION
     Route: 067
  3. TYLENOL (CAPLET) [Suspect]
  4. TYLENOL (CAPLET) [Suspect]
     Indication: PYREXIA
  5. VITAMIN TAB [Concomitant]

REACTIONS (2)
  - ABORTION SPONTANEOUS [None]
  - DRUG EXPOSURE DURING PREGNANCY [None]
